FAERS Safety Report 11278948 (Version 1)
Quarter: 2015Q3

REPORT INFORMATION
  Report Type: Report from Study
  Country: CA (occurrence: CA)
  Receive Date: 20150717
  Receipt Date: 20150717
  Transmission Date: 20151125
  Serious: Yes (Other)
  Sender: FDA-Public Use
  Company Number: CA-AMGEN-CANSL2015069155

PATIENT
  Age: 56 Year
  Sex: Male

DRUGS (1)
  1. ENBREL [Suspect]
     Active Substance: ETANERCEPT
     Indication: PRODUCT USED FOR UNKNOWN INDICATION
     Dosage: 50 MG, UNK
     Route: 065
     Dates: start: 20060426

REACTIONS (10)
  - Pyrexia [Unknown]
  - Blood pressure abnormal [Unknown]
  - Diabetes mellitus [Unknown]
  - Impaired healing [Not Recovered/Not Resolved]
  - Blood cholesterol abnormal [Unknown]
  - Abdominal discomfort [Unknown]
  - Joint injury [Not Recovered/Not Resolved]
  - Infection [Unknown]
  - Arthritis [Unknown]
  - Rash [Unknown]
